FAERS Safety Report 8397814-2 (Version None)
Quarter: 2012Q2

REPORT INFORMATION
  Report Type: 
  Country: None (occurrence: None)
  Receive Date: 20120531
  Receipt Date: 20120522
  Transmission Date: 20120825
  Serious: Yes (Hospitalization)
  Sender: FDA-Public Use
  Company Number: US-US-EMD SERONO, INC.-7024998

PATIENT
  Sex: Female

DRUGS (3)
  1. REBIF [Suspect]
     Indication: PRODUCT USED FOR UNKNOWN INDICATION
     Route: 058
     Dates: start: 20081218, end: 20101015
  2. KEPPRA [Concomitant]
     Indication: CONVULSION
  3. PRIMIDONE [Concomitant]
     Indication: TREMOR

REACTIONS (2)
  - WOUND INFECTION [None]
  - LACERATION [None]
